FAERS Safety Report 23561581 (Version 3)
Quarter: 2024Q2

REPORT INFORMATION
  Report Type: Spontaneous
  Country: FR (occurrence: FR)
  Receive Date: 20240225
  Receipt Date: 20240415
  Transmission Date: 20240715
  Serious: Yes (Death, Disabling, Other)
  Sender: FDA-Public Use
  Company Number: FR-AstraZeneca-2024A022751

PATIENT
  Age: 73 Year
  Sex: Male
  Weight: 82 kg

DRUGS (3)
  1. CARBOPLATIN [Suspect]
     Active Substance: CARBOPLATIN
     Indication: Small cell lung cancer extensive stage
     Dosage: UNK
     Route: 042
  2. DURVALUMAB [Suspect]
     Active Substance: DURVALUMAB
     Indication: Small cell lung cancer extensive stage
     Dosage: 1500 MILLIGRAM (3 WEEK)
     Route: 042
     Dates: start: 20230222, end: 20230622
  3. PREDNISONE [Concomitant]
     Active Substance: PREDNISONE
     Indication: Product used for unknown indication
     Dosage: 40 MILLIGRAM, ONCE A DAY
     Route: 048
     Dates: start: 20230711

REACTIONS (4)
  - Monoparesis [Fatal]
  - Malignant neoplasm progression [Fatal]
  - Confusional state [Unknown]
  - Asthenia [Unknown]

NARRATIVE: CASE EVENT DATE: 20230712
